FAERS Safety Report 6020810-7 (Version None)
Quarter: 2008Q4

REPORT INFORMATION
  Report Type: 
  Country: None (occurrence: None)
  Receive Date: 20081229
  Receipt Date: 20081222
  Transmission Date: 20090506
  Serious: Yes (Life-Threatening)
  Sender: FDA-Public Use
  Company Number: JP-JNJFOC-20081200167

PATIENT
  Sex: Male
  Weight: 51 kg

DRUGS (12)
  1. ITRACONAZOLE [Suspect]
     Indication: BRONCHOPULMONARY ASPERGILLOSIS
     Route: 048
  2. VORICONAZOLE [Suspect]
     Indication: BRONCHOPULMONARY ASPERGILLOSIS
     Route: 041
  3. MICAFUNGIN SODIUM [Concomitant]
     Indication: BRONCHOPULMONARY ASPERGILLOSIS
     Route: 041
  4. MAXIPIME [Concomitant]
     Indication: BRONCHITIS CHRONIC
     Route: 042
  5. SPIRIVA [Concomitant]
     Indication: BRONCHITIS CHRONIC
     Route: 055
  6. THEO-DUR [Concomitant]
     Indication: BRONCHITIS CHRONIC
     Route: 048
  7. LASIX [Concomitant]
     Indication: HYPERTENSION
     Route: 048
  8. CALSLOT [Concomitant]
     Indication: HYPERTENSION
     Route: 048
  9. VESICARE [Concomitant]
     Indication: HYPERTONIC BLADDER
     Route: 048
  10. RESPLEN [Concomitant]
     Indication: BRONCHITIS CHRONIC
     Route: 048
  11. MUCODYNE [Concomitant]
     Indication: BRONCHITIS CHRONIC
     Route: 048
  12. HOKUNALIN:TAPE [Concomitant]
     Indication: BRONCHITIS CHRONIC
     Route: 062

REACTIONS (1)
  - LUNG DISORDER [None]
